FAERS Safety Report 8903510 (Version 2)
Quarter: 2012Q4

REPORT INFORMATION
  Report Type: 
  Country: US (occurrence: US)
  Receive Date: 20121113
  Receipt Date: 20121204
  Transmission Date: 20130627
  Serious: No
  Sender: FDA-Public Use
  Company Number: US-ASTRAZENECA-2012SE84685

PATIENT
  Age: 55 Year
  Sex: Female
  Weight: 59 kg

DRUGS (4)
  1. SYMBICORT PMDI [Suspect]
     Indication: CHRONIC OBSTRUCTIVE PULMONARY DISEASE
     Dosage: 160/4.5 MCG , 2 PUFFS BID
     Route: 055
     Dates: start: 201203
  2. LEVOTHYROXINE [Concomitant]
     Indication: THYROID DISORDER
     Route: 048
     Dates: start: 1996
  3. CALCIUM [Concomitant]
     Indication: THYROIDECTOMY
  4. CALCIUM [Concomitant]
     Indication: THYROIDECTOMY

REACTIONS (10)
  - Heart rate increased [Unknown]
  - Nervousness [Unknown]
  - Nausea [Unknown]
  - Headache [Unknown]
  - Insomnia [Unknown]
  - Anxiety [Unknown]
  - Palpitations [Unknown]
  - Muscle spasms [Unknown]
  - Dizziness [Unknown]
  - Arrhythmia [Unknown]
